FAERS Safety Report 14259223 (Version 1)
Quarter: 2017Q4

REPORT INFORMATION
  Report Type: Spontaneous
  Country: US (occurrence: US)
  Receive Date: 20171207
  Receipt Date: 20171207
  Transmission Date: 20180321
  Serious: Yes (Death, Other)
  Sender: FDA-Public Use
  Company Number: US-BRISTOL-MYERS SQUIBB COMPANY-BMS-2017-110971

PATIENT
  Sex: Male
  Weight: 83.4 kg

DRUGS (1)
  1. OPDIVO [Suspect]
     Active Substance: NIVOLUMAB
     Indication: MALIGNANT PALATE NEOPLASM
     Dosage: 100 MG, Q2WK
     Route: 042

REACTIONS (2)
  - Malignant neoplasm progression [Fatal]
  - Prescribed underdose [Unknown]
